FAERS Safety Report 7377825-6 (Version None)
Quarter: 2011Q1

REPORT INFORMATION
  Report Type: 
  Country: None (occurrence: None)
  Receive Date: 20110328
  Receipt Date: 20110318
  Transmission Date: 20110831
  Serious: Yes (Hospitalization)
  Sender: FDA-Public Use
  Company Number: AU-ROCHE-766681

PATIENT
  Age: 36 Year
  Sex: Male

DRUGS (4)
  1. SOLIAN [Suspect]
     Route: 048
  2. HALOPERIDOL [Suspect]
     Route: 065
  3. DIAZEPAM [Suspect]
     Route: 065
  4. OLANZAPINE [Suspect]
     Route: 065

REACTIONS (1)
  - FEELING JITTERY [None]
